FAERS Safety Report 8993506 (Version 1)
Quarter: 2013Q1

REPORT INFORMATION
  Report Type: Spontaneous
  Country: GB (occurrence: GB)
  Receive Date: 20130102
  Receipt Date: 20130102
  Transmission Date: 20140127
  Serious: Yes (Hospitalization, Other)
  Sender: FDA-Public Use
  Company Number: GB-PFIZER INC-2012332286

PATIENT
  Age: 71 Year
  Sex: Male
  Weight: 110.7 kg

DRUGS (7)
  1. IBUPROFEN [Suspect]
     Indication: PRODUCT USED FOR UNKNOWN INDICATION
     Dosage: 400 MG
     Route: 065
     Dates: start: 2000, end: 20100703
  2. ACETYLSALICYLIC ACID [Suspect]
     Indication: PRODUCT USED FOR UNKNOWN INDICATION
     Dosage: UNK
     Route: 065
     Dates: start: 1997, end: 20120703
  3. PLAVIX [Suspect]
     Indication: PRODUCT USED FOR UNKNOWN INDICATION
     Dosage: 75 MG
     Route: 065
     Dates: start: 200910, end: 20100703
  4. ALLOPURINOL [Concomitant]
     Route: 065
     Dates: start: 1970
  5. AMLODIPINE [Concomitant]
     Route: 065
     Dates: start: 20091031
  6. ATORVASTATIN [Concomitant]
     Route: 065
     Dates: start: 20091130
  7. LOPRESSOR [Concomitant]
     Route: 065
     Dates: start: 20091030

REACTIONS (5)
  - Gastrointestinal haemorrhage [Recovered/Resolved]
  - Diverticulum [Unknown]
  - Gastritis [Unknown]
  - Duodenitis [Unknown]
  - Polyp [Unknown]
